FAERS Safety Report 11827758 (Version 2)
Quarter: 2016Q2

REPORT INFORMATION
  Report Type: Report from Study
  Country: CA (occurrence: CA)
  Receive Date: 20151211
  Receipt Date: 20160623
  Transmission Date: 20160815
  Serious: Yes (Other)
  Sender: FDA-Public Use
  Company Number: CA-GILEAD-2015-0185631

PATIENT
  Age: 69 Year
  Sex: Female

DRUGS (2)
  1. EPREX [Concomitant]
     Active Substance: ERYTHROPOIETIN
     Route: 065
  2. LEDIPASVIR/SOFOSBUVIR [Suspect]
     Active Substance: LEDIPASVIR\SOFOSBUVIR
     Indication: CHRONIC HEPATITIS C
     Dosage: 90 MG, UNK
     Route: 048
     Dates: start: 20151111

REACTIONS (8)
  - Vomiting [Unknown]
  - Haemoglobin increased [Unknown]
  - Blood glucose increased [Unknown]
  - Weight decreased [Unknown]
  - Eating disorder [Unknown]
  - Unevaluable event [Unknown]
  - Blood disorder [Unknown]
  - Fatigue [Unknown]

NARRATIVE: CASE EVENT DATE: 201511
